FAERS Safety Report 17172683 (Version 1)
Quarter: 2019Q4

REPORT INFORMATION
  Report Type: Spontaneous
  Country: US (occurrence: US)
  Receive Date: 20191218
  Receipt Date: 20191218
  Transmission Date: 20200122
  Serious: No
  Sender: FDA-Public Use
  Company Number: US-TEVA-2019-US-1152677

PATIENT
  Age: 61 Year
  Sex: Male

DRUGS (1)
  1. BUPRENORPHINE. [Suspect]
     Active Substance: BUPRENORPHINE
     Indication: BACK PAIN
     Dosage: FORM STRENGTH: 20 MCG / HR
     Route: 062

REACTIONS (4)
  - Application site pain [Unknown]
  - Application site erythema [Unknown]
  - Product quality issue [Unknown]
  - Application site pruritus [Unknown]

NARRATIVE: CASE EVENT DATE: 201911
